FAERS Safety Report 4909991-3 (Version None)
Quarter: 2006Q1

REPORT INFORMATION
  Report Type: 
  Country: None (occurrence: None)
  Receive Date: 20060213
  Receipt Date: 20060118
  Transmission Date: 20060701
  Serious: Yes (Hospitalization)
  Sender: FDA-Public Use
  Company Number: 2006UW01152

PATIENT
  Age: 35 Year
  Sex: Male
  Weight: 73.2 kg

DRUGS (2)
  1. SEROQUEL [Suspect]
     Indication: SCHIZOPHRENIA
     Route: 048
     Dates: start: 20051025, end: 20060114
  2. SEROQUEL [Suspect]
     Route: 048
     Dates: start: 20060126

REACTIONS (1)
  - INTESTINAL OBSTRUCTION [None]
